FAERS Safety Report 4478498-2 (Version None)
Quarter: 2004Q4

REPORT INFORMATION
  Report Type: 
  Country: None (occurrence: None)
  Receive Date: 20041018
  Receipt Date: 20041018
  Transmission Date: 20050328
  Serious: Yes (Hospitalization, Disabling)
  Sender: FDA-Public Use
  Company Number: None

PATIENT
  Age: 70 Year
  Sex: Female
  Weight: 72.5755 kg

DRUGS (1)
  1. NAMENDA [Suspect]
     Indication: DEMENTIA ALZHEIMER'S TYPE
     Dosage: PO
     Route: 048
     Dates: start: 20040830, end: 20041013

REACTIONS (5)
  - AGITATION [None]
  - CONFUSIONAL STATE [None]
  - FALL [None]
  - PETECHIAE [None]
  - RASH ERYTHEMATOUS [None]
